FAERS Safety Report 13840198 (Version 1)
Quarter: 2017Q3

REPORT INFORMATION
  Report Type: Spontaneous
  Country: US (occurrence: US)
  Receive Date: 20170807
  Receipt Date: 20170807
  Transmission Date: 20171127
  Serious: Yes (Hospitalization)
  Sender: FDA-Public Use
  Company Number: None

PATIENT
  Age: 66 Year
  Sex: Female
  Weight: 58.5 kg

DRUGS (5)
  1. HYDROXYZINE HCL [Concomitant]
     Active Substance: HYDROXYZINE HYDROCHLORIDE
  2. IBRANCE [Suspect]
     Active Substance: PALBOCICLIB
     Indication: BREAST CANCER FEMALE
     Route: 048
     Dates: start: 20170428, end: 20170518
  3. ANASTROZOLE. [Concomitant]
     Active Substance: ANASTROZOLE
  4. FASLODEX [Concomitant]
     Active Substance: FULVESTRANT
  5. PROCHLORPERAZINE. [Concomitant]
     Active Substance: PROCHLORPERAZINE

REACTIONS (6)
  - Neutrophil count decreased [None]
  - Platelet count decreased [None]
  - Constipation [None]
  - Fatigue [None]
  - Blood potassium decreased [None]
  - Infection [None]

NARRATIVE: CASE EVENT DATE: 20170523
